FAERS Safety Report 14126044 (Version 1)
Quarter: 2017Q4

REPORT INFORMATION
  Report Type: Spontaneous
  Country: RO (occurrence: RO)
  Receive Date: 20171025
  Receipt Date: 20171025
  Transmission Date: 20180321
  Serious: Yes (Other)
  Sender: FDA-Public Use
  Company Number: RO-PFIZER INC-2017440106

PATIENT
  Age: 60 Year
  Sex: Male

DRUGS (3)
  1. ZOLEDRONIC ACID [Concomitant]
     Active Substance: ZOLEDRONIC ACID
     Dosage: 4 MG, UNK (EVERY 28 DAYS)
  2. SUNITINIB MALATE. [Suspect]
     Active Substance: SUNITINIB MALATE
     Indication: RENAL CANCER METASTATIC
     Dosage: 50 MG, DAILY (4 WEEKS ON/2 WEEKS OFF)
     Route: 048
     Dates: start: 201303
  3. SUNITINIB MALATE. [Suspect]
     Active Substance: SUNITINIB MALATE
     Dosage: 37.5 MG, DAILY(4 WEEKS ON, 2 WEEKS OFF)
     Route: 048

REACTIONS (7)
  - Neurotoxicity [Unknown]
  - Fatigue [Unknown]
  - Yellow skin [Unknown]
  - Dry skin [Unknown]
  - Hypertension [Unknown]
  - Oedema [Unknown]
  - Eye swelling [Unknown]
